FAERS Safety Report 4823258-3 (Version None)
Quarter: 2005Q4

REPORT INFORMATION
  Report Type: 
  Country: None (occurrence: None)
  Receive Date: 20051107
  Receipt Date: 20051024
  Transmission Date: 20060501
  Serious: Yes (Disabling)
  Sender: FDA-Public Use
  Company Number: 8013036

PATIENT
  Age: 24 Year
  Sex: Male

DRUGS (4)
  1. KEPPRA [Suspect]
     Indication: PARTIAL SEIZURES
     Dosage: 2000 MG /D
     Dates: start: 20050301, end: 20050101
  2. KEPPRA [Suspect]
     Indication: PARTIAL SEIZURES
     Dosage: 3000 MG /D
     Dates: start: 20050101
  3. DEPAKENE [Concomitant]
  4. LAMICTAL [Concomitant]

REACTIONS (2)
  - ABASIA [None]
  - DIZZINESS [None]
